FAERS Safety Report 10247095 (Version 2)
Quarter: 2014Q2

REPORT INFORMATION
  Report Type: Spontaneous
  Country: GB (occurrence: None)
  Receive Date: 20140617
  Receipt Date: 20140624
  Transmission Date: 20141212
  Serious: Yes (Hospitalization)
  Sender: FDA-Public Use
  Company Number: AUR-APL-2014-06443

PATIENT
  Age: 73 Year
  Sex: Male
  Weight: 86 kg

DRUGS (11)
  1. AMOXICILLIN [Suspect]
     Indication: DIVERTICULITIS
     Route: 048
     Dates: start: 20140510, end: 20140517
  2. METRONIDAZOLE [Suspect]
     Indication: DIVERTICULITIS
     Route: 048
     Dates: start: 20140510, end: 20140517
  3. METRONIDAZOLE BENZOATE [Suspect]
     Indication: DIVERTICULITIS
     Route: 042
     Dates: start: 20140507, end: 20140510
  4. AMOXICILLIN (AMOXICILLIN) [Suspect]
     Indication: DIVERTICULITIS
     Route: 042
     Dates: start: 20140507, end: 20140510
  5. BUSCOPAN (HYOSCINE BUTYLBROMIDE) [Concomitant]
  6. TAMSULOSIN (TAMSULOSIN) [Concomitant]
  7. TRAMADOL (TRAMADOL) [Concomitant]
  8. ALLOPURINOL /00003302 (ALLOPURINOL SODIUM) [Concomitant]
  9. LANSOPRAZOLE (LANSOPRAZOLE) [Concomitant]
  10. EZETIMIBE (EZETIMIBE) [Concomitant]
  11. LATANOPROST/TIMOLOL (LATANOPROST, TIMOLOL MALEATE) [Concomitant]

REACTIONS (7)
  - Dizziness [None]
  - Tongue discolouration [None]
  - Nightmare [None]
  - Headache [None]
  - Diverticulitis [None]
  - Balance disorder [None]
  - Abdominal pain lower [None]
